FAERS Safety Report 9383827 (Version 1)
Quarter: 2013Q3

REPORT INFORMATION
  Report Type: Spontaneous
  Country: FR (occurrence: FR)
  Receive Date: 20130704
  Receipt Date: 20130704
  Transmission Date: 20140515
  Serious: Yes (Hospitalization, Other)
  Sender: FDA-Public Use
  Company Number: FR-ASTRAZENECA-2013SE48978

PATIENT
  Age: 1107 Week
  Sex: Male

DRUGS (7)
  1. XEROQUEL [Suspect]
     Dosage: ONCE
     Route: 048
     Dates: start: 20130307, end: 20130307
  2. BROMAZEPAM [Suspect]
     Dosage: ONCE
     Route: 048
     Dates: start: 20130307, end: 20130307
  3. VENLAFAXINE [Suspect]
     Dosage: ONCE
     Route: 048
     Dates: start: 20130307, end: 20130307
  4. LOXAPAC [Suspect]
     Dosage: ONCE
     Route: 048
     Dates: start: 20130307, end: 20130307
  5. ZOPICLONE [Suspect]
     Dosage: ONCE
     Route: 048
     Dates: start: 20130307, end: 20130307
  6. TRAMADOL BASE [Suspect]
     Dosage: ONCE
     Route: 048
     Dates: start: 20130307, end: 20130307
  7. LEPTICUR [Suspect]
     Dosage: ONCE
     Route: 048
     Dates: start: 20130307, end: 20130307

REACTIONS (5)
  - Coma [Recovered/Resolved]
  - Rhabdomyolysis [Unknown]
  - Toxicity to various agents [Unknown]
  - Somnolence [Unknown]
  - Hypothermia [Unknown]
